FAERS Safety Report 13158836 (Version 1)
Quarter: 2017Q1

REPORT INFORMATION
  Report Type: Spontaneous
  Country: US (occurrence: US)
  Receive Date: 20170126
  Receipt Date: 20170126
  Transmission Date: 20170428
  Serious: Yes (Other)
  Sender: FDA-Public Use
  Company Number: None

PATIENT
  Age: 67 Year
  Sex: Male

DRUGS (11)
  1. TESTOST. ENTH 200MG/ML MDV 5ML WESTWARD [Suspect]
     Active Substance: TESTOSTERONE ENANTHATE
     Indication: TESTICULAR HYPERFUNCTION
     Route: 030
     Dates: start: 201101
  2. VITAMIN D [Concomitant]
     Active Substance: CHOLECALCIFEROL
  3. SYNTHROID [Concomitant]
     Active Substance: LEVOTHYROXINE SODIUM
  4. SKELAXIN [Concomitant]
     Active Substance: METAXALONE
  5. ASPIRIN. [Concomitant]
     Active Substance: ASPIRIN
  6. DEMADEX [Concomitant]
     Active Substance: TORSEMIDE
  7. NEURONTIN [Concomitant]
     Active Substance: GABAPENTIN
  8. A-HYDROCORT [Concomitant]
     Active Substance: HYDROCORTISONE SODIUM SUCCINATE
  9. LORTAB [Concomitant]
     Active Substance: ACETAMINOPHEN\HYDROCODONE BITARTRATE
  10. BIT B-12 [Concomitant]
  11. PRAVACHOL [Concomitant]
     Active Substance: PRAVASTATIN SODIUM

REACTIONS (2)
  - Retinal disorder [None]
  - Pituitary tumour [None]

NARRATIVE: CASE EVENT DATE: 20170111
